FAERS Safety Report 5778320-8 (Version None)
Quarter: 2008Q2

REPORT INFORMATION
  Report Type: 
  Country: None (occurrence: None)
  Receive Date: 20080601
  Receipt Date: 20080113
  Transmission Date: 20081010
  Serious: No
  Sender: FDA-Public Use
  Company Number: US200801002601

PATIENT
  Age: 54 Year
  Sex: Female
  Weight: 93.4 kg

DRUGS (12)
  1. BYETTA [Suspect]
     Indication: TYPE 2 DIABETES MELLITUS
     Dosage: 5 UG, 2/D, SUBCUTANEOUS
     Route: 058
     Dates: start: 20080108, end: 20080113
  2. GLUCOPHAGE /USA/ (METFORMIN HYDROCHLORIDE) [Concomitant]
  3. ACIPHEX [Concomitant]
  4. SYMBICORT [Concomitant]
  5. SPIRIVA [Concomitant]
  6. SINGULAIR [Concomitant]
  7. XOPENEX [Concomitant]
  8. CELEBREX [Concomitant]
  9. CYMBALTA [Concomitant]
  10. ULTRAM [Concomitant]
  11. LEVOTHYROXINE SODIUM [Concomitant]
  12. ZYRTEC [Concomitant]

REACTIONS (6)
  - ABDOMINAL PAIN UPPER [None]
  - CONSTIPATION [None]
  - ERUCTATION [None]
  - FATIGUE [None]
  - FEELING ABNORMAL [None]
  - FLATULENCE [None]
